FAERS Safety Report 7827290-7 (Version None)
Quarter: 2011Q4

REPORT INFORMATION
  Report Type: 
  Country: None (occurrence: None)
  Receive Date: 20111020
  Receipt Date: 20111017
  Transmission Date: 20120403
  Serious: Yes (Hospitalization, Other)
  Sender: FDA-Public Use
  Company Number: FR-PFIZER INC-2011247568

PATIENT
  Age: 58 Year
  Sex: Male

DRUGS (2)
  1. NEURONTIN [Suspect]
     Indication: PERIPHERAL NERVE INJURY
     Dosage: 100 MG 2 DF DAILY
  2. ACETAMINOPHEN [Concomitant]
     Dosage: UNK
     Dates: start: 20110801

REACTIONS (2)
  - TENDONITIS [None]
  - FEMUR FRACTURE [None]
